FAERS Safety Report 4613708-X (Version None)
Quarter: 2005Q1

REPORT INFORMATION
  Report Type: 
  Country: None (occurrence: None)
  Receive Date: 20050315
  Receipt Date: 20040513
  Transmission Date: 20050727
  Serious: Yes (Death)
  Sender: FDA-Public Use
  Company Number: 7961

PATIENT
  Age: 24 Month
  Sex: Male

DRUGS (4)
  1. VINCRISTINE [Suspect]
  2. CYCLOPHOSPHAMIDE [Suspect]
  3. DACTINOMYCIN [Suspect]
     Dosage: IV
     Route: 042
  4. DOXORUBICIN HCL [Concomitant]

REACTIONS (2)
  - MALIGNANT NEOPLASM PROGRESSION [None]
  - RHABDOMYOSARCOMA [None]
